FAERS Safety Report 4393573-9 (Version None)
Quarter: 2004Q3

REPORT INFORMATION
  Report Type: 
  Country: None (occurrence: None)
  Receive Date: 20040709
  Receipt Date: 20040316
  Transmission Date: 20050211
  Serious: Yes (Other)
  Sender: FDA-Public Use
  Company Number: DE-ROCHE-362154

PATIENT
  Age: 53 Year
  Sex: Female

DRUGS (2)
  1. XENICAL [Suspect]
     Route: 048
     Dates: start: 20010815, end: 20030515
  2. UNKNOWN DRUGS [Concomitant]
     Indication: METABOLIC DISORDER

REACTIONS (2)
  - BLOOD CHOLESTEROL INCREASED [None]
  - HYPERTRIGLYCERIDAEMIA [None]
